FAERS Safety Report 11596866 (Version 1)
Quarter: 2015Q4

REPORT INFORMATION
  Report Type: Spontaneous
  Country: HU (occurrence: HU)
  Receive Date: 20151006
  Receipt Date: 20151006
  Transmission Date: 20160304
  Serious: Yes (Hospitalization, Other)
  Sender: FDA-Public Use
  Company Number: HU-PFIZER INC-2015321544

PATIENT
  Age: 52 Year
  Sex: Female

DRUGS (1)
  1. SUTENT [Suspect]
     Active Substance: SUNITINIB MALATE
     Indication: NEUROENDOCRINE CARCINOMA
     Dosage: 25 MG, DAILY
     Route: 048
     Dates: start: 20141216

REACTIONS (4)
  - Abdominal distension [Unknown]
  - Hepatomegaly [Unknown]
  - Abdominal rigidity [Unknown]
  - Face oedema [Unknown]
